FAERS Safety Report 4281972-5 (Version None)
Quarter: 2004Q1

REPORT INFORMATION
  Report Type: 
  Country: None (occurrence: None)
  Receive Date: 20040128
  Receipt Date: 20040121
  Transmission Date: 20041129
  Serious: Yes (Death, Life-Threatening, Hospitalization, Other)
  Sender: FDA-Public Use
  Company Number: 200330012BWH

PATIENT
  Age: 82 Year
  Sex: Male
  Weight: 70.2 kg

DRUGS (20)
  1. MOXIFLOXACIN IV (MOXIFLOXACIN) [Suspect]
     Dosage: QD, INTRAVENOUS
     Route: 042
     Dates: start: 20031201, end: 20031202
  2. LEVOFLOXACIN [Suspect]
     Dosage: QD, INTRAVENOUS
     Route: 042
     Dates: start: 20031202
  3. LOTENSIN [Concomitant]
  4. LIPITOR [Concomitant]
  5. TYLENOL (CAPLET) [Concomitant]
  6. ALBUTEROL [Concomitant]
  7. ATROVENT [Concomitant]
  8. ZOFRAN [Concomitant]
  9. LEVAQUIN [Concomitant]
  10. ZOSYN [Concomitant]
  11. RIMANTIDINE [Concomitant]
  12. QUININE SULFATE [Concomitant]
  13. COUMADIN [Concomitant]
  14. LASIX [Concomitant]
  15. VITAMIN E [Concomitant]
  16. ATIVAN [Concomitant]
  17. HALDOL [Concomitant]
  18. CAFFEINE [Concomitant]
  19. MORPHINE [Concomitant]
  20. SEROQUEL [Concomitant]

REACTIONS (4)
  - ACUTE MYOCARDIAL INFARCTION [None]
  - COAGULOPATHY [None]
  - MEDICATION ERROR [None]
  - RENAL FAILURE ACUTE [None]
